FAERS Safety Report 5868687-4 (Version None)
Quarter: 2008Q3

REPORT INFORMATION
  Report Type: 
  Country: None (occurrence: None)
  Receive Date: 20080903
  Receipt Date: 20080826
  Transmission Date: 20090109
  Serious: Yes (Hospitalization)
  Sender: FDA-Public Use
  Company Number: PHHY2008IE17856

PATIENT
  Sex: Female

DRUGS (5)
  1. DIOVAN [Suspect]
     Indication: HYPERTENSION
     Dosage: 80 MG, QD
     Route: 048
     Dates: start: 20080301
  2. DIOVAN [Suspect]
     Dosage: 160 MG, QD
  3. DIOVAN [Suspect]
     Dosage: 160 3/4 TAB
  4. NU-SEALS ASPIRIN [Concomitant]
     Dosage: 75 MG/DAY
     Route: 048
  5. ACETAMINOPHEN [Concomitant]

REACTIONS (6)
  - DIZZINESS [None]
  - FEELING ABNORMAL [None]
  - INSOMNIA [None]
  - PAIN [None]
  - SENSORY DISTURBANCE [None]
  - TENSION HEADACHE [None]
